FAERS Safety Report 5648855-7 (Version None)
Quarter: 2008Q1

REPORT INFORMATION
  Report Type: 
  Country: None (occurrence: None)
  Receive Date: 20080304
  Receipt Date: 20080227
  Transmission Date: 20080703
  Serious: Yes (Death, Hospitalization)
  Sender: FDA-Public Use
  Company Number: FR-ELI_LILLY_AND_COMPANY-FR200708004253

PATIENT
  Age: 82 Year
  Sex: Female
  Weight: 50 kg

DRUGS (2)
  1. FORTEO [Suspect]
     Indication: OSTEOPOROSIS
     Dosage: 20 UG, DAILY (1/D)
     Route: 058
     Dates: start: 20070314, end: 20071001
  2. UVEDOSE [Concomitant]
     Dosage: 1 D/F, OTHER
     Route: 048
     Dates: start: 20061101, end: 20070901

REACTIONS (2)
  - LEIOMYOSARCOMA RECURRENT [None]
  - SPINAL FRACTURE [None]
